FAERS Safety Report 16967515 (Version 1)
Quarter: 2019Q4

REPORT INFORMATION
  Report Type: Spontaneous
  Country: US (occurrence: US)
  Receive Date: 20190910
  Receipt Date: 20190910
  Transmission Date: 20200122
  Serious: Yes (Hospitalization)
  Sender: FDA-Public Use
  Company Number: None

PATIENT
  Age: 71 Year
  Sex: Female

DRUGS (1)
  1. ALLOPURINOL 100MG TAB [Suspect]
     Active Substance: ALLOPURINOL
     Indication: GOUT
     Route: 048
     Dates: start: 20190713, end: 20190822

REACTIONS (5)
  - Skin discolouration [None]
  - Therapy cessation [None]
  - Rash [None]
  - Asthenia [None]
  - Rash erythematous [None]

NARRATIVE: CASE EVENT DATE: 20190831
